FAERS Safety Report 12245980 (Version 2)
Quarter: 2016Q2

REPORT INFORMATION
  Report Type: Report from Study
  Country: US (occurrence: US)
  Receive Date: 20160407
  Receipt Date: 20160505
  Transmission Date: 20160815
  Serious: No
  Sender: FDA-Public Use
  Company Number: GXBR2016US000980

PATIENT
  Age: 45 Year
  Sex: Female
  Weight: 58.5 kg

DRUGS (2)
  1. GLATOPA [Suspect]
     Active Substance: GLATIRAMER ACETATE
     Indication: MULTIPLE SCLEROSIS
     Dosage: 20 MG, QD
     Route: 065
     Dates: start: 20160222, end: 20160302
  2. GLATOPA [Suspect]
     Active Substance: GLATIRAMER ACETATE
     Dosage: 40 MG, QW3
     Route: 065
     Dates: start: 20160302

REACTIONS (6)
  - Rash [Not Recovered/Not Resolved]
  - Injection site vesicles [Not Recovered/Not Resolved]
  - Injection site rash [Not Recovered/Not Resolved]
  - Injection site pruritus [Not Recovered/Not Resolved]
  - Injection site mass [Not Recovered/Not Resolved]
  - Injection site erythema [Not Recovered/Not Resolved]

NARRATIVE: CASE EVENT DATE: 20160314
